FAERS Safety Report 23688733 (Version 1)
Quarter: 2024Q1

REPORT INFORMATION
  Report Type: Spontaneous
  Country: CH (occurrence: CH)
  Receive Date: 20240329
  Receipt Date: 20240329
  Transmission Date: 20240410
  Serious: Yes (Hospitalization, Other)
  Sender: FDA-Public Use
  Company Number: CH-SA-SAC20240325000599

PATIENT
  Age: 68 Year
  Sex: Male

DRUGS (1)
  1. LIBTAYO [Suspect]
     Active Substance: CEMIPLIMAB-RWLC
     Indication: Product used for unknown indication
     Dosage: UNK
     Route: 065
     Dates: start: 20220726

REACTIONS (2)
  - Gastric perforation [Unknown]
  - Transplant rejection [Unknown]

NARRATIVE: CASE EVENT DATE: 20220816
